FAERS Safety Report 8110641-6 (Version None)
Quarter: 2012Q1

REPORT INFORMATION
  Report Type: 
  Country: None (occurrence: None)
  Receive Date: 20120203
  Receipt Date: 20120123
  Transmission Date: 20120608
  Serious: Yes (Other)
  Sender: FDA-Public Use
  Company Number: US-RB-033984-12

PATIENT
  Age: 22 Year
  Sex: Female

DRUGS (1)
  1. MUCINEX DM [Suspect]
     Indication: RESPIRATORY TRACT CONGESTION
     Route: 048
     Dates: start: 20120118, end: 20120119

REACTIONS (10)
  - EPISTAXIS [None]
  - EAR DISORDER [None]
  - HEADACHE [None]
  - THROAT IRRITATION [None]
  - ANXIETY [None]
  - DYSPNOEA [None]
  - RASH [None]
  - FEELING JITTERY [None]
  - COUGH [None]
  - INSOMNIA [None]
